FAERS Safety Report 21723239 (Version 6)
Quarter: 2024Q1

REPORT INFORMATION
  Report Type: Report from Study
  Country: US (occurrence: US)
  Receive Date: 20221213
  Receipt Date: 20240319
  Transmission Date: 20240410
  Serious: Yes (Hospitalization, Other)
  Sender: FDA-Public Use
  Company Number: US-TAKEDA-US202031205

PATIENT
  Age: 70 Year
  Sex: Female

DRUGS (2)
  1. HUMAN IMMUNOGLOBULIN G [Suspect]
     Active Substance: HUMAN IMMUNOGLOBULIN G
     Indication: Primary immunodeficiency syndrome
     Dosage: 10 GRAM, Q4WEEKS
     Route: 042
  2. HUMAN IMMUNOGLOBULIN G [Suspect]
     Active Substance: HUMAN IMMUNOGLOBULIN G
     Indication: Immunodeficiency common variable

REACTIONS (20)
  - Neoplasm malignant [Unknown]
  - Renal impairment [Unknown]
  - Synovial cyst [Unknown]
  - Graft complication [Unknown]
  - Poor venous access [Unknown]
  - Vein disorder [Unknown]
  - Magnetic resonance imaging abnormal [Unknown]
  - Bladder disorder [Unknown]
  - Ingrowing nail [Unknown]
  - Breast mass [Unknown]
  - Blood disorder [Unknown]
  - Spinal disorder [Unknown]
  - Meniscus injury [Unknown]
  - Viral infection [Unknown]
  - Gout [Unknown]
  - Undifferentiated connective tissue disease [Unknown]
  - Upper respiratory tract infection [Unknown]
  - Sinusitis [Unknown]
  - Blood pressure increased [Not Recovered/Not Resolved]
  - Headache [Not Recovered/Not Resolved]

NARRATIVE: CASE EVENT DATE: 20221207
